FAERS Safety Report 7458735-2 (Version None)
Quarter: 2011Q2

REPORT INFORMATION
  Report Type: 
  Country: None (occurrence: None)
  Receive Date: 20110504
  Receipt Date: 20100709
  Transmission Date: 20111010
  Serious: No
  Sender: FDA-Public Use
  Company Number: US-SANOFI-AVENTIS-2010SA041386

PATIENT
  Age: 78 Year
  Sex: Female

DRUGS (4)
  1. APIDRA [Suspect]
     Indication: TYPE 2 DIABETES MELLITUS
     Dosage: 5 UNITS IN MORNING AND 20 UNITS IN AFTERNOON
     Route: 058
     Dates: start: 20100501
  2. LANTUS [Suspect]
     Indication: TYPE 2 DIABETES MELLITUS
     Dosage: DOSE:40 UNIT(S)
     Route: 058
     Dates: start: 20090101
  3. APIDRA [Suspect]
     Dosage: 20 UNITS IN MORNING AND 20 UNITS IN AFTERNOON
     Route: 058
     Dates: start: 20100101
  4. APIDRA [Suspect]
     Dosage: ABOUT 60 TO 63 UNITS PER DAY (VARIOUS DOSES THREE TO FOUR TIMES A DAY)
     Route: 058
     Dates: start: 20100101

REACTIONS (4)
  - PRURITUS [None]
  - PAIN IN EXTREMITY [None]
  - BLOOD GLUCOSE INCREASED [None]
  - DRUG INEFFECTIVE [None]
